FAERS Safety Report 4589244-6 (Version None)
Quarter: 2005Q1

REPORT INFORMATION
  Report Type: 
  Country: None (occurrence: None)
  Receive Date: 20050216
  Receipt Date: 20050216
  Transmission Date: 20050727
  Serious: Yes (Other)
  Sender: FDA-Public Use
  Company Number: None

PATIENT
  Age: 42 Year
  Sex: Female
  Weight: 124 kg

DRUGS (3)
  1. LEVOTHYROXINE 200 MCG [Suspect]
     Indication: HYPERTHYROIDISM
     Dosage: 1 TABLET ORAL QD
     Route: 048
     Dates: start: 20050128, end: 20050204
  2. LEVOTHYROXINE 25 MCG [Suspect]
     Indication: HYPOTHYROIDISM
     Dosage: 1 TABLET PO QD
     Route: 048
     Dates: start: 20050128, end: 20050204
  3. ACIPHEX [Concomitant]

REACTIONS (1)
  - PANIC ATTACK [None]
